FAERS Safety Report 15545689 (Version 1)
Quarter: 2018Q4

REPORT INFORMATION
  Report Type: Other
  Country: FI (occurrence: FI)
  Receive Date: 20181024
  Receipt Date: 20181024
  Transmission Date: 20190205
  Serious: Yes (Life-Threatening)
  Sender: FDA-Public Use
  Company Number: FI-ASTELLAS-2018US045067

PATIENT
  Age: 51 Year
  Sex: Male

DRUGS (1)
  1. VESICARE [Suspect]
     Active Substance: SOLIFENACIN SUCCINATE
     Indication: PRODUCT USED FOR UNKNOWN INDICATION
     Route: 048

REACTIONS (7)
  - Road traffic accident [Recovered/Resolved]
  - Arrhythmia [Recovered/Resolved]
  - Malaise [Recovered/Resolved]
  - Loss of consciousness [Recovered/Resolved]
  - Electrocardiogram QT prolonged [Recovered/Resolved]
  - Vomiting [Recovered/Resolved]
  - Vision blurred [Recovered/Resolved]

NARRATIVE: CASE EVENT DATE: 20180701
